FAERS Safety Report 14541122 (Version 3)
Quarter: 2020Q4

REPORT INFORMATION
  Report Type: Spontaneous
  Country: US (occurrence: US)
  Receive Date: 20180216
  Receipt Date: 20201105
  Transmission Date: 20210113
  Serious: Yes (Other)
  Sender: FDA-Public Use
  Company Number: US-ELI_LILLY_AND_COMPANY-US201802002375

PATIENT
  Sex: Female

DRUGS (2)
  1. HUMALOG [Suspect]
     Active Substance: INSULIN LISPRO
     Dosage: 5 U, EVERY HOUR
     Route: 058
  2. HUMALOG [Suspect]
     Active Substance: INSULIN LISPRO
     Indication: TYPE 1 DIABETES MELLITUS
     Dosage: 5 U, EVERY HOUR
     Route: 058
     Dates: start: 2005

REACTIONS (8)
  - Blood glucose decreased [Recovered/Resolved]
  - Diabetic ketoacidosis [Recovering/Resolving]
  - Hormone level abnormal [Unknown]
  - Drug ineffective [Unknown]
  - Incorrect dose administered [Unknown]
  - Illness [Unknown]
  - Thyroid disorder [Unknown]
  - Blood glucose increased [Recovering/Resolving]
